FAERS Safety Report 23414334 (Version 2)
Quarter: 2024Q1

REPORT INFORMATION
  Report Type: Report from Study
  Country: US (occurrence: US)
  Receive Date: 20240118
  Receipt Date: 20240123
  Transmission Date: 20240409
  Serious: No
  Sender: FDA-Public Use
  Company Number: US-002147023-NVSC2024US010511

PATIENT
  Age: 39 Year
  Sex: Female

DRUGS (1)
  1. COSENTYX [Suspect]
     Active Substance: SECUKINUMAB
     Indication: Product used for unknown indication
     Dosage: UNK (150MG X2)
     Route: 065

REACTIONS (7)
  - Device issue [Unknown]
  - Needle issue [Unknown]
  - Device difficult to use [Unknown]
  - Product dose omission issue [Unknown]
  - Device malfunction [Unknown]
  - Injection site discharge [Unknown]
  - Administration site discomfort [Unknown]

NARRATIVE: CASE EVENT DATE: 20240115
